FAERS Safety Report 19763381 (Version 4)
Quarter: 2025Q1

REPORT INFORMATION
  Report Type: Report from Study
  Country: CA (occurrence: CA)
  Receive Date: 20210830
  Receipt Date: 20250212
  Transmission Date: 20250409
  Serious: Yes (Other)
  Sender: TAKEDA
  Company Number: CA-TAKEDA-2019TUS041492

PATIENT
  Sex: Female

DRUGS (10)
  1. VEDOLIZUMAB [Suspect]
     Active Substance: VEDOLIZUMAB
     Indication: Crohn^s disease
  2. VEDOLIZUMAB [Suspect]
     Active Substance: VEDOLIZUMAB
  3. VEDOLIZUMAB [Suspect]
     Active Substance: VEDOLIZUMAB
  4. VEDOLIZUMAB [Suspect]
     Active Substance: VEDOLIZUMAB
  5. RITUXAN [Concomitant]
     Active Substance: RITUXIMAB
  6. VITAMIN D [Concomitant]
     Active Substance: VITAMIN D NOS
  7. BUDESONIDE [Concomitant]
     Active Substance: BUDESONIDE
  8. DALFAMPRIDINE [Concomitant]
     Active Substance: DALFAMPRIDINE
  9. OCREVUS [Concomitant]
     Active Substance: OCRELIZUMAB
  10. PREDNISONE [Concomitant]
     Active Substance: PREDNISONE

REACTIONS (13)
  - Crohn^s disease [Unknown]
  - Pneumonia [Unknown]
  - Female genital tract fistula [Unknown]
  - Abdominal mass [Unknown]
  - Neutrophil count increased [Unknown]
  - Aphthous ulcer [Unknown]
  - Weight decreased [Unknown]
  - Platelet count decreased [Unknown]
  - Diarrhoea [Unknown]
  - Gait disturbance [Unknown]
  - Nasopharyngitis [Unknown]
  - Arthralgia [Unknown]
  - Influenza [Unknown]
